FAERS Safety Report 8200012-6 (Version None)
Quarter: 2012Q1

REPORT INFORMATION
  Report Type: 
  Country: None (occurrence: None)
  Receive Date: 20120312
  Receipt Date: 20120309
  Transmission Date: 20120608
  Serious: No
  Sender: FDA-Public Use
  Company Number: US-PFIZER INC-2012063616

PATIENT
  Sex: Female
  Weight: 61.678 kg

DRUGS (5)
  1. LAMOTRIGINE [Concomitant]
     Dosage: UNK
  2. CHANTIX [Suspect]
     Dosage: 0.5 MG, 2X/DAY
     Route: 048
     Dates: start: 20120301
  3. CELEXA [Concomitant]
     Dosage: UNK
  4. CHANTIX [Suspect]
     Indication: GENERAL PHYSICAL HEALTH DETERIORATION
     Dosage: 0.5 MG, 1X/DAY
     Route: 048
     Dates: start: 20120302, end: 20120301
  5. VOLTAREN [Concomitant]
     Dosage: UNK

REACTIONS (1)
  - STRESS [None]
